FAERS Safety Report 5917181-0 (Version None)
Quarter: 2008Q4

REPORT INFORMATION
  Report Type: 
  Country: None (occurrence: None)
  Receive Date: 20081014
  Receipt Date: 20081007
  Transmission Date: 20090506
  Serious: Yes (Hospitalization)
  Sender: FDA-Public Use
  Company Number: GB-BRISTOL-MYERS SQUIBB COMPANY-14295018

PATIENT
  Age: 31 Year
  Sex: Female

DRUGS (13)
  1. CYCLOPHOSPHAMIDE [Suspect]
     Indication: STEM CELL TRANSPLANT
     Route: 065
  2. ALEMTUZUMAB [Suspect]
     Indication: STEM CELL TRANSPLANT
     Route: 065
  3. BUSULFAN [Suspect]
     Indication: STEM CELL TRANSPLANT
     Route: 065
  4. CYTARABINE [Suspect]
     Indication: ACUTE MYELOID LEUKAEMIA
     Route: 065
  5. FLUDARABINE PHOSPHATE [Suspect]
     Indication: ACUTE MYELOID LEUKAEMIA
     Route: 065
  6. NEUPOGEN [Suspect]
     Indication: CHEMOTHERAPY
     Route: 065
  7. IDARUBICIN HCL [Suspect]
     Indication: ACUTE MYELOID LEUKAEMIA
     Route: 065
  8. ANTIBIOTICS [Concomitant]
  9. CYCLOSPORINE [Concomitant]
  10. MYCOPHENOLATE MOFETIL [Concomitant]
  11. ANTI-THYMOCYTE GLOBULIN NOS [Concomitant]
  12. TAZOBACTAM SODIUM [Concomitant]
  13. IMMUNOSUPPRESSIVE DRUG [Concomitant]

REACTIONS (2)
  - DISSEMINATED TUBERCULOSIS [None]
  - IMMUNE RECONSTITUTION SYNDROME [None]
